FAERS Safety Report 7802420-1 (Version None)
Quarter: 2011Q4

REPORT INFORMATION
  Report Type: 
  Country: None (occurrence: None)
  Receive Date: 20111005
  Receipt Date: 20110921
  Transmission Date: 20120403
  Serious: Yes (Hospitalization)
  Sender: FDA-Public Use
  Company Number: TPA2011A06100

PATIENT
  Sex: Male

DRUGS (2)
  1. ULORIC [Suspect]
     Indication: GOUT
     Dosage: 40 MG
  2. IBUPROFEN [Concomitant]

REACTIONS (3)
  - GOUT [None]
  - DYSURIA [None]
  - CONDITION AGGRAVATED [None]
